FAERS Safety Report 5331773-1 (Version None)
Quarter: 2007Q2

REPORT INFORMATION
  Report Type: 
  Country: None (occurrence: None)
  Receive Date: 20070517
  Receipt Date: 20070511
  Transmission Date: 20071010
  Serious: Yes (Other)
  Sender: FDA-Public Use
  Company Number: 2007BI010272

PATIENT
  Age: 57 Year
  Sex: Female

DRUGS (5)
  1. AVONEX [Suspect]
     Indication: MULTIPLE SCLEROSIS
     Dosage: 15 UG;QW;IM
     Route: 030
     Dates: start: 20050121, end: 20050701
  2. AVONEX [Suspect]
     Indication: MULTIPLE SCLEROSIS
     Dosage: 30 UG;QW;IM
     Route: 030
     Dates: start: 20050701, end: 20060701
  3. AVONEX [Suspect]
     Indication: MULTIPLE SCLEROSIS
     Dosage: 30 UG;QW;IM
     Route: 030
     Dates: start: 20070101
  4. ATENOLOL [Concomitant]
  5. AMBIEN [Concomitant]

REACTIONS (3)
  - BREAST CANCER [None]
  - CHROMATURIA [None]
  - SWELLING FACE [None]
